FAERS Safety Report 5385867-5 (Version None)
Quarter: 2007Q3

REPORT INFORMATION
  Report Type: 
  Country: None (occurrence: None)
  Receive Date: 20070712
  Receipt Date: 20070704
  Transmission Date: 20080115
  Serious: Yes (Other)
  Sender: FDA-Public Use
  Company Number: HQWYE907905JUL07

PATIENT
  Sex: Male

DRUGS (2)
  1. AMIODARONE HCL [Suspect]
     Indication: VENTRICULAR TACHYCARDIA
     Dosage: UNSPECIFIED
     Route: 048
     Dates: end: 20050101
  2. AMIODARONE HCL [Suspect]
     Indication: ATRIOVENTRICULAR BLOCK COMPLETE
     Dosage: UNSPECIFIED
     Route: 048
     Dates: start: 20070401

REACTIONS (2)
  - CEREBELLAR ATAXIA [None]
  - HYPERTHYROIDISM [None]
